FAERS Safety Report 4409964-3 (Version None)
Quarter: 2004Q3

REPORT INFORMATION
  Report Type: 
  Country: None (occurrence: None)
  Receive Date: 20040726
  Receipt Date: 20040714
  Transmission Date: 20050211
  Serious: Yes (Life-Threatening, Hospitalization, Disabling)
  Sender: FDA-Public Use
  Company Number: 2004221716JP

PATIENT
  Age: 58 Year
  Sex: Male
  Weight: 53 kg

DRUGS (12)
  1. CLINDAMYCIN HCL [Suspect]
     Indication: INFECTION
     Dosage: 600 MG, BID, IV
     Route: 042
     Dates: start: 20040624, end: 20040628
  2. VANCOMYCIN [Suspect]
     Indication: STAPHYLOCOCCAL INFECTION
     Dosage: 1 G, BID, IV
     Route: 042
     Dates: start: 20040615, end: 20040624
  3. OMEGACIN (BIAPENEM) SOLUTION [Suspect]
     Indication: INFECTION
     Dosage: 0.6 G, BID, IV
     Route: 042
     Dates: start: 20040617, end: 20040624
  4. MEROPEN (MEROPENEM) SOLUTION [Suspect]
     Indication: INFECTION
     Dosage: 0.5 G, BID, IV
     Route: 042
     Dates: start: 20040624, end: 20040627
  5. TIENAM (CILASTATIN, IMIPENEM) [Concomitant]
  6. NEUTROGIN [Concomitant]
  7. CIPROXAN (CIPROFLOXACIN HYDROCHLORIDE) [Concomitant]
  8. PRODIF [Concomitant]
  9. EXACIN (ISEPAMICIN SULFATE) [Concomitant]
  10. MODACIN (CEFTAZIDIME) [Concomitant]
  11. FUNGUARD [Concomitant]
  12. .. [Concomitant]

REACTIONS (6)
  - ALANINE AMINOTRANSFERASE INCREASED [None]
  - ANURIA [None]
  - ASPARTATE AMINOTRANSFERASE INCREASED [None]
  - BLOOD CREATINE PHOSPHOKINASE INCREASED [None]
  - HAEMODIALYSIS [None]
  - RENAL FAILURE ACUTE [None]
